FAERS Safety Report 9213898 (Version 1)
Quarter: 2013Q2

REPORT INFORMATION
  Report Type: Spontaneous
  Country: JP (occurrence: JP)
  Receive Date: 20130405
  Receipt Date: 20130405
  Transmission Date: 20140414
  Serious: Yes (Death)
  Sender: FDA-Public Use
  Company Number: JP-SANOFI-AVENTIS-2013SA034136

PATIENT
  Age: 70 Year
  Sex: Male

DRUGS (1)
  1. LASIX [Suspect]
     Indication: PRODUCT USED FOR UNKNOWN INDICATION
     Route: 048
     Dates: start: 201105

REACTIONS (2)
  - Toxic epidermal necrolysis [Fatal]
  - Disseminated intravascular coagulation [Fatal]
